FAERS Safety Report 8889565 (Version 1)
Quarter: 2012Q4

REPORT INFORMATION
  Report Type: 
  Country: FR (occurrence: FR)
  Receive Date: 20121107
  Receipt Date: 20121107
  Transmission Date: 20130627
  Serious: Yes (Other)
  Sender: FDA-Public Use
  Company Number: FR-COVIDIEN/TYCO HEALTHCARE/MALLINCKRODT-T201203846

PATIENT
  Age: 21 Year
  Sex: Female

DRUGS (1)
  1. OPTIJECT [Suspect]
     Indication: COMPUTERISED TOMOGRAM HEAD
     Dosage: 50 ml, single
     Route: 042
     Dates: start: 20110905, end: 20110905

REACTIONS (3)
  - Bronchospasm [Recovered/Resolved]
  - Oedema mucosal [Recovered/Resolved]
  - Erythema [Recovered/Resolved]
